FAERS Safety Report 9720117 (Version 3)
Quarter: 2016Q3

REPORT INFORMATION
  Report Type: Spontaneous
  Country: OM (occurrence: OM)
  Receive Date: 20131128
  Receipt Date: 20160729
  Transmission Date: 20161109
  Serious: Yes (Other)
  Sender: FDA-Public Use
  Company Number: OM-BRISTOL-MYERS SQUIBB COMPANY-19828524

PATIENT
  Age: 40 Year
  Sex: Female

DRUGS (1)
  1. METFORMIN HYDROCHLORIDE. [Suspect]
     Active Substance: METFORMIN HYDROCHLORIDE
     Indication: GESTATIONAL DIABETES
     Route: 065

REACTIONS (13)
  - Polyhydramnios [Recovered/Resolved]
  - Normal newborn [Unknown]
  - Blood pressure immeasurable [Recovered/Resolved]
  - Hypotension [Recovered/Resolved]
  - Dizziness [Recovered/Resolved]
  - Off label use [Unknown]
  - Bradycardia [Recovered/Resolved]
  - Unstable foetal lie [Recovered/Resolved]
  - Hypertension [Not Recovered/Not Resolved]
  - Maternal exposure during pregnancy [Recovered/Resolved]
  - Caesarean section [Unknown]
  - Dyspnoea [Recovered/Resolved]
  - Uterine malposition [Recovered/Resolved]
